FAERS Safety Report 5956049-0 (Version None)
Quarter: 2008Q4

REPORT INFORMATION
  Report Type: 
  Country: None (occurrence: None)
  Receive Date: 20081118
  Receipt Date: 20081107
  Transmission Date: 20090506
  Serious: Yes (Other)
  Sender: FDA-Public Use
  Company Number: IE-RANBAXY-2008US-19220

PATIENT

DRUGS (1)
  1. ISOTRETINOIN [Suspect]
     Indication: DRUG USE FOR UNKNOWN INDICATION
     Dosage: UNK, UNK

REACTIONS (3)
  - DERMATITIS CONTACT [None]
  - DRY SKIN [None]
  - PERIORBITAL OEDEMA [None]
